FAERS Safety Report 10608911 (Version 4)
Quarter: 2015Q2

REPORT INFORMATION
  Report Type: Report from Study
  Country: DE (occurrence: DE)
  Receive Date: 20141125
  Receipt Date: 20150508
  Transmission Date: 20150821
  Serious: Yes (Other)
  Sender: FDA-Public Use
  Company Number: DE-CELGENE-DEU-2014113214

PATIENT
  Age: 49 Year
  Sex: Female
  Weight: 64 kg

DRUGS (4)
  1. VELCADE [Suspect]
     Active Substance: BORTEZOMIB
     Indication: PLASMA CELL MYELOMA
     Dosage: 800 MILLIGRAM
     Route: 058
     Dates: start: 20131108, end: 20131230
  2. IBUPROFEN. [Concomitant]
     Active Substance: IBUPROFEN
     Indication: BONE PAIN
     Route: 065
     Dates: start: 2010
  3. L-THYROXIN [Concomitant]
     Active Substance: LEVOTHYROXINE SODIUM
     Indication: HYPOTHYROIDISM
     Route: 048
     Dates: start: 20141023
  4. REVLIMID [Suspect]
     Active Substance: LENALIDOMIDE
     Indication: PLASMA CELL MYELOMA
     Dosage: 10 MILLIGRAM
     Route: 048
     Dates: start: 20140711, end: 20141005

REACTIONS (1)
  - Visual field defect [Recovered/Resolved]

NARRATIVE: CASE EVENT DATE: 20141107
